FAERS Safety Report 5656102-5 (Version None)
Quarter: 2008Q1

REPORT INFORMATION
  Report Type: 
  Country: None (occurrence: None)
  Receive Date: 20080305
  Receipt Date: 20080219
  Transmission Date: 20080703
  Serious: Yes (Other)
  Sender: FDA-Public Use
  Company Number: ACO_00443_2008

PATIENT
  Age: 60 Year
  Sex: Female

DRUGS (4)
  1. ZANAFLEX [Suspect]
     Indication: FIBROMYALGIA
     Dosage: SEE IMAGE
     Route: 048
     Dates: end: 20070725
  2. ZANAFLEX [Suspect]
     Indication: FIBROMYALGIA
     Dosage: SEE IMAGE
     Route: 048
     Dates: start: 20070919, end: 20080126
  3. ZANAFLEX [Suspect]
     Indication: FIBROMYALGIA
     Dosage: SEE IMAGE
     Route: 048
     Dates: start: 20070327
  4. VALIUM /00266901/ [Concomitant]

REACTIONS (5)
  - AMNESIA [None]
  - HALLUCINATIONS, MIXED [None]
  - OFF LABEL USE [None]
  - STRESS [None]
  - WEIGHT FLUCTUATION [None]
